FAERS Safety Report 17743660 (Version 2)
Quarter: 2020Q2

REPORT INFORMATION
  Report Type: Report from Study
  Country: US (occurrence: US)
  Receive Date: 20200504
  Receipt Date: 20200513
  Transmission Date: 20200714
  Serious: Yes (Death, Hospitalization, Other)
  Sender: FDA-Public Use
  Company Number: US-ACTELION-A-NJ2018-183884

PATIENT
  Age: 42 Year
  Sex: Female
  Weight: 50.79 kg

DRUGS (5)
  1. TADALAFIL. [Concomitant]
     Active Substance: TADALAFIL
  2. VELETRI [Suspect]
     Active Substance: EPOPROSTENOL
     Dosage: 13 NG/KG, PER MIN
     Route: 042
  3. XARELTO [Concomitant]
     Active Substance: RIVAROXABAN
  4. VELETRI [Suspect]
     Active Substance: EPOPROSTENOL
     Indication: PULMONARY ARTERIAL HYPERTENSION
     Dosage: 30 NG/KG, PER MIN
     Route: 042
     Dates: end: 20200305
  5. OPSUMIT [Suspect]
     Active Substance: MACITENTAN
     Indication: PULMONARY ARTERIAL HYPERTENSION
     Dosage: 10 MG, QD
     Route: 048
     Dates: end: 20200305

REACTIONS (11)
  - Pulseless electrical activity [Fatal]
  - Condition aggravated [Unknown]
  - Dyspnoea [Unknown]
  - Pain in jaw [Unknown]
  - Pulmonary hypertension [Fatal]
  - Cardiac arrest [Fatal]
  - Palpitations [Unknown]
  - Dyspnoea at rest [Unknown]
  - Dyspnoea exertional [Unknown]
  - Ascites [Unknown]
  - Headache [Unknown]

NARRATIVE: CASE EVENT DATE: 201904
